FAERS Safety Report 9266985 (Version 1)
Quarter: 2013Q2

REPORT INFORMATION
  Report Type: Spontaneous
  Country: US (occurrence: US)
  Receive Date: 20130502
  Receipt Date: 20130502
  Transmission Date: 20140414
  Serious: No
  Sender: FDA-Public Use
  Company Number: US-PFIZER INC-2013136846

PATIENT
  Age: 43 Year
  Sex: Male
  Weight: 56.69 kg

DRUGS (2)
  1. LYRICA [Suspect]
     Indication: NERVE INJURY
     Dosage: 150 MG, 4X/DAY
     Dates: start: 2009
  2. LORCET [Suspect]
     Indication: NERVE INJURY
     Dosage: 10/650MG, EVERY 6 HOURS
     Dates: start: 2009

REACTIONS (2)
  - Drug dose omission [Unknown]
  - Cold sweat [Unknown]
